FAERS Safety Report 5049345-5 (Version None)
Quarter: 2006Q3

REPORT INFORMATION
  Report Type: 
  Country: None (occurrence: None)
  Receive Date: 20060712
  Receipt Date: 20060526
  Transmission Date: 20061208
  Serious: Yes (Hospitalization)
  Sender: FDA-Public Use
  Company Number: US-GLAXOSMITHKLINE-A0607084A

PATIENT
  Age: 79 Year
  Sex: Female

DRUGS (9)
  1. ADVAIR DISKUS 100/50 [Suspect]
     Indication: CHRONIC OBSTRUCTIVE PULMONARY DISEASE
     Dosage: 1PUFF TWICE PER DAY
     Route: 055
     Dates: start: 20060201
  2. ALBUTEROL SPIROS [Concomitant]
  3. IPRATROPIUM BROMIDE [Concomitant]
  4. NADOLOL [Concomitant]
  5. REQUIP [Concomitant]
  6. CLONAZEPAM [Concomitant]
  7. LASIX [Concomitant]
  8. METHADOSE [Concomitant]
  9. ZOCOR [Concomitant]

REACTIONS (6)
  - DIARRHOEA [None]
  - DRUG ADMINISTRATION ERROR [None]
  - NAUSEA [None]
  - POOR QUALITY DRUG ADMINISTERED [None]
  - TRANSIENT ISCHAEMIC ATTACK [None]
  - VOMITING [None]
